FAERS Safety Report 15434783 (Version 1)
Quarter: 2018Q4

REPORT INFORMATION
  Report Type: Spontaneous
  Country: ES (occurrence: ES)
  Receive Date: 20180927
  Receipt Date: 20180927
  Transmission Date: 20190204
  Serious: Yes (Death, Hospitalization)
  Sender: FDA-Public Use
  Company Number: ES-PFIZER INC-2018389547

PATIENT
  Age: 80 Year
  Sex: Male

DRUGS (11)
  1. ORFIDAL [Interacting]
     Active Substance: LORAZEPAM
     Dosage: 1 MG, 1X/DAY
     Route: 048
     Dates: start: 20180718, end: 20180718
  2. SINEMET [Suspect]
     Active Substance: CARBIDOPA\LEVODOPA
     Dosage: 1 DF, 3X/DAY
     Route: 048
     Dates: start: 20180718, end: 20180718
  3. PLAVIX [Suspect]
     Active Substance: CLOPIDOGREL BISULFATE
     Route: 048
     Dates: start: 20180718, end: 20180718
  4. MIRTAZAPINE. [Suspect]
     Active Substance: MIRTAZAPINE
     Dosage: 15 MG, 1X/DAY
     Route: 048
     Dates: start: 20180718, end: 20180718
  5. SERTRALINE [Interacting]
     Active Substance: SERTRALINE HYDROCHLORIDE
     Dosage: 50 MG, SINGLE
     Route: 048
     Dates: start: 20180718, end: 20180718
  6. QUETIAPINE FUMARATE. [Interacting]
     Active Substance: QUETIAPINE FUMARATE
     Dosage: 100 MG, SINGLE
     Route: 048
     Dates: start: 20180718, end: 20180718
  7. DUPHALAC EASY STR [Suspect]
     Active Substance: LACTULOSE
     Route: 048
     Dates: start: 20180718, end: 20180718
  8. PREGABALIN. [Suspect]
     Active Substance: PREGABALIN
     Dosage: 300 MG, SINGLE
     Route: 048
     Dates: start: 20180718, end: 20180718
  9. SIMVASTATIN. [Suspect]
     Active Substance: SIMVASTATIN
     Route: 048
     Dates: start: 20180718, end: 20180718
  10. CROMATONBIC [Suspect]
     Active Substance: VITAMINS
     Route: 048
     Dates: start: 20180718, end: 20180718
  11. AMLODIPINE [Suspect]
     Active Substance: AMLODIPINE BESYLATE
     Dosage: 5 MG, 1X/DAY
     Route: 048
     Dates: start: 20180718, end: 20180718

REACTIONS (3)
  - Drug interaction [Unknown]
  - Wrong patient received product [Fatal]
  - Hypotension [Fatal]

NARRATIVE: CASE EVENT DATE: 20180718
